FAERS Safety Report 14775506 (Version 4)
Quarter: 2019Q2

REPORT INFORMATION
  Report Type: Spontaneous
  Country: US (occurrence: US)
  Receive Date: 20180418
  Receipt Date: 20190531
  Transmission Date: 20190711
  Serious: Yes (Hospitalization, Other)
  Sender: FDA-Public Use
  Company Number: US-PFIZER INC-2018155070

PATIENT
  Age: 72 Year
  Sex: Female
  Weight: 88 kg

DRUGS (3)
  1. MELOXICAM. [Concomitant]
     Active Substance: MELOXICAM
     Dosage: UNK
  2. XELJANZ [Suspect]
     Active Substance: TOFACITINIB CITRATE
     Dosage: 20 MG, 1X/DAY
     Route: 048
     Dates: start: 2017, end: 2018
  3. XELJANZ [Suspect]
     Active Substance: TOFACITINIB CITRATE
     Indication: RHEUMATOID ARTHRITIS
     Dosage: 5 MG, 2X/DAY
     Route: 048
     Dates: start: 201710

REACTIONS (13)
  - Renal impairment [Recovered/Resolved]
  - Gallbladder disorder [Recovered/Resolved]
  - Overdose [Unknown]
  - Malaise [Recovered/Resolved]
  - Arthropathy [Not Recovered/Not Resolved]
  - Dehydration [Recovered/Resolved]
  - Sinus disorder [Not Recovered/Not Resolved]
  - Foot fracture [Recovered/Resolved]
  - Pain [Not Recovered/Not Resolved]
  - Viral infection [Unknown]
  - Influenza [Recovered/Resolved]
  - Herpes zoster [Recovered/Resolved]
  - Upper respiratory tract infection [Recovered/Resolved]

NARRATIVE: CASE EVENT DATE: 2018
